FAERS Safety Report 13965319 (Version 1)
Quarter: 2017Q3

REPORT INFORMATION
  Report Type: Spontaneous
  Country: US (occurrence: US)
  Receive Date: 20170913
  Receipt Date: 20170913
  Transmission Date: 20171128
  Serious: No
  Sender: FDA-Public Use
  Company Number: US-VIVUS, INC.-2016V1000349

PATIENT
  Sex: Female

DRUGS (2)
  1. QSYMIA [Suspect]
     Active Substance: PHENTERMINE HYDROCHLORIDE\TOPIRAMATE
     Indication: PRODUCT USED FOR UNKNOWN INDICATION
     Route: 048
  2. QSYMIA [Suspect]
     Active Substance: PHENTERMINE HYDROCHLORIDE\TOPIRAMATE
     Indication: PRODUCT USED FOR UNKNOWN INDICATION
     Route: 048

REACTIONS (10)
  - Feeling jittery [Unknown]
  - Nausea [Unknown]
  - Dizziness [Unknown]
  - Feeling abnormal [Unknown]
  - Tremor [Unknown]
  - Psychomotor hyperactivity [Unknown]
  - Fatigue [Unknown]
  - Mood altered [Unknown]
  - Anxiety [Unknown]
  - Disturbance in attention [Unknown]
